FAERS Safety Report 8239568-6 (Version None)
Quarter: 2012Q1

REPORT INFORMATION
  Report Type: 
  Country: None (occurrence: None)
  Receive Date: 20120328
  Receipt Date: 20120323
  Transmission Date: 20120608
  Serious: Yes (Death)
  Sender: FDA-Public Use
  Company Number: JP-JNJFOC-20111209409

PATIENT
  Age: 78 Year
  Sex: Female

DRUGS (6)
  1. NICERGOLINE [Concomitant]
     Indication: MENTAL IMPAIRMENT
     Route: 048
     Dates: start: 20100715
  2. GALANTAMINE HYDROBROMIDE [Suspect]
     Indication: DEMENTIA ALZHEIMER'S TYPE
     Route: 048
     Dates: start: 20110901, end: 20111207
  3. DONEPEZIL HCL [Suspect]
     Route: 065
     Dates: start: 20110501
  4. MUCOSTA [Concomitant]
     Indication: GASTROINTESTINAL DISORDER THERAPY
     Route: 048
     Dates: start: 20110901
  5. DONEPEZIL HCL [Suspect]
     Indication: PRODUCT USED FOR UNKNOWN INDICATION
     Route: 065
     Dates: start: 20070101, end: 20110501
  6. TOCOPHEROL ACETATE [Concomitant]
     Indication: ARTERIOSCLEROSIS
     Route: 048
     Dates: start: 20080925

REACTIONS (1)
  - AORTIC DISSECTION RUPTURE [None]
